FAERS Safety Report 9812490 (Version 4)
Quarter: 2014Q1

REPORT INFORMATION
  Report Type: Spontaneous
  Country: US (occurrence: US)
  Receive Date: 20140113
  Receipt Date: 20140324
  Transmission Date: 20141002
  Serious: No
  Sender: FDA-Public Use
  Company Number: US-BIOGENIDEC-2014BI002518

PATIENT
  Age: 60 Year
  Sex: Female

DRUGS (2)
  1. AVONEX [Suspect]
     Indication: MULTIPLE SCLEROSIS
     Route: 030
     Dates: start: 20080417, end: 20130115
  2. AVONEX [Suspect]
     Indication: MULTIPLE SCLEROSIS
     Route: 030
     Dates: start: 20140205, end: 2014

REACTIONS (9)
  - General symptom [Not Recovered/Not Resolved]
  - Drug intolerance [Not Recovered/Not Resolved]
  - Memory impairment [Unknown]
  - Adverse event [Recovered/Resolved]
  - Influenza like illness [Recovered/Resolved]
  - Vomiting [Unknown]
  - Chills [Unknown]
  - Myalgia [Unknown]
  - Headache [Unknown]
